FAERS Safety Report 14774386 (Version 2)
Quarter: 2018Q2

REPORT INFORMATION
  Report Type: Spontaneous
  Country: CH (occurrence: CH)
  Receive Date: 20180418
  Receipt Date: 20180608
  Transmission Date: 20180711
  Serious: Yes (Life-Threatening, Other)
  Sender: FDA-Public Use
  Company Number: CH-B.I. PHARMACEUTICALS,INC./RIDGEFIELD-2018-SM-000011

PATIENT
  Age: 49 Year
  Sex: Female

DRUGS (9)
  1. TEMESTA (LORAZEPAM) [Suspect]
     Active Substance: LORAZEPAM
     Indication: PRODUCT USED FOR UNKNOWN INDICATION
     Dosage: DOSE: 10+8
     Route: 042
     Dates: start: 20180401, end: 20180401
  2. TRAMADOL. [Suspect]
     Active Substance: TRAMADOL
     Indication: PRODUCT USED FOR UNKNOWN INDICATION
     Route: 048
     Dates: start: 20180331, end: 20180331
  3. ANXIOLIT [Suspect]
     Active Substance: OXAZEPAM
     Indication: PRODUCT USED FOR UNKNOWN INDICATION
     Route: 048
     Dates: start: 20180401, end: 20180401
  4. METOCLOPRAMIDE. [Suspect]
     Active Substance: METOCLOPRAMIDE
     Indication: PRODUCT USED FOR UNKNOWN INDICATION
     Route: 030
     Dates: start: 20180331, end: 20180331
  5. CYPROHEPTADINE. [Suspect]
     Active Substance: CYPROHEPTADINE
     Indication: PRODUCT USED FOR UNKNOWN INDICATION
     Route: 048
     Dates: start: 20180401, end: 20180401
  6. KETOROLAC [Concomitant]
     Active Substance: KETOROLAC\KETOROLAC TROMETHAMINE
     Indication: PRODUCT USED FOR UNKNOWN INDICATION
     Route: 030
     Dates: start: 20180331, end: 20180331
  7. NOVORAPID [Concomitant]
     Active Substance: INSULIN ASPART
     Indication: PRODUCT USED FOR UNKNOWN INDICATION
     Route: 065
  8. CATAPRESAN [Suspect]
     Active Substance: CLONIDINE
     Indication: PRODUCT USED FOR UNKNOWN INDICATION
     Dosage: SINGLE ORDER
     Route: 042
     Dates: start: 20180401, end: 20180401
  9. ANEXATE [Concomitant]
     Active Substance: FLUMAZENIL
     Indication: PRODUCT USED FOR UNKNOWN INDICATION
     Route: 065
     Dates: start: 20180401, end: 20180401

REACTIONS (7)
  - Systemic inflammatory response syndrome [None]
  - Depressed level of consciousness [Recovered/Resolved]
  - Serotonin syndrome [Recovered/Resolved]
  - Cough [None]
  - Intervertebral discitis [None]
  - Acute respiratory failure [Recovered/Resolved]
  - Urinary tract infection [None]

NARRATIVE: CASE EVENT DATE: 20180331
